FAERS Safety Report 6376328-5 (Version None)
Quarter: 2009Q3

REPORT INFORMATION
  Report Type: 
  Country: None (occurrence: None)
  Receive Date: 20090925
  Receipt Date: 20090922
  Transmission Date: 20100115
  Serious: Yes (Other)
  Sender: FDA-Public Use
  Company Number: US-TEVA-210184USA

PATIENT
  Sex: Female

DRUGS (2)
  1. CLARAVIS [Suspect]
     Route: 048
     Dates: start: 20090729, end: 20090921
  2. YAZ [Concomitant]
     Indication: CONTRACEPTION
     Route: 048
     Dates: start: 20090906

REACTIONS (2)
  - METRORRHAGIA [None]
  - UNINTENDED PREGNANCY [None]
